FAERS Safety Report 9316623 (Version 4)
Quarter: 2014Q1

REPORT INFORMATION
  Report Type: Report from Study
  Country: BR (occurrence: BR)
  Receive Date: 20130530
  Receipt Date: 20140124
  Transmission Date: 20141002
  Serious: Yes (Hospitalization, Other)
  Sender: FDA-Public Use
  Company Number: BR-BAYER-2013-063918

PATIENT
  Age: 56 Year
  Sex: Male
  Weight: 75 kg

DRUGS (4)
  1. NEXAVAR [Suspect]
     Indication: HEPATOCELLULAR CARCINOMA
     Dosage: 2 DF, BID (2 TABLETS IN THE MORNING AND 2 TABLETS AT NIGHT)
     Route: 048
     Dates: start: 201210
  2. OMEPRAZOLE [Concomitant]
     Indication: PROPHYLAXIS
     Dosage: 1 DF, QD
     Route: 048
     Dates: start: 201209
  3. PROPRANOLOL [Concomitant]
     Indication: CARDIOVASCULAR EVENT PROPHYLAXIS
     Dosage: 1 DF, QD
     Route: 048
     Dates: start: 201209
  4. SPIRONOLACTONE [Concomitant]
     Indication: HEPATIC CIRRHOSIS
     Dosage: 1 DF, QD
     Route: 048
     Dates: start: 201209

REACTIONS (20)
  - Vascular rupture [Recovered/Resolved]
  - Intra-abdominal haemorrhage [Recovered/Resolved]
  - Neoplasm progression [Not Recovered/Not Resolved]
  - Vomiting [Recovered/Resolved]
  - Haematochezia [Recovered/Resolved]
  - Skin exfoliation [Not Recovered/Not Resolved]
  - Alopecia [Recovering/Resolving]
  - Alopecia [Not Recovered/Not Resolved]
  - Dermatitis acneiform [Not Recovered/Not Resolved]
  - Venous injury [Recovered/Resolved]
  - Venous occlusion [Recovered/Resolved]
  - Diarrhoea [Not Recovered/Not Resolved]
  - Somnolence [Unknown]
  - Dysphonia [Unknown]
  - Abnormal behaviour [Unknown]
  - Acne [Unknown]
  - Weight decreased [Unknown]
  - Pruritus generalised [Unknown]
  - Muscular weakness [Unknown]
  - Drug ineffective [None]
